FAERS Safety Report 21908353 (Version 2)
Quarter: 2023Q1

REPORT INFORMATION
  Report Type: Spontaneous
  Country: US (occurrence: US)
  Receive Date: 20230125
  Receipt Date: 20230315
  Transmission Date: 20230418
  Serious: Yes (Other)
  Sender: FDA-Public Use
  Company Number: US-MYLANLABS-2023M1007833

PATIENT
  Age: 21 Year
  Sex: Female

DRUGS (5)
  1. LOVASTATIN [Suspect]
     Active Substance: LOVASTATIN
     Indication: Type IIa hyperlipidaemia
     Dosage: 20 MILLIGRAM, BID
     Route: 065
  2. LOVASTATIN [Suspect]
     Active Substance: LOVASTATIN
     Dosage: 40 MILLIGRAM, BID; EVENTUALLY INCREASED TO 40MG TWICE DAILY)
     Route: 065
  3. ATORVASTATIN [Suspect]
     Active Substance: ATORVASTATIN
     Indication: Type IIa hyperlipidaemia
     Dosage: UNK
     Route: 065
  4. EVOLOCUMAB [Concomitant]
     Active Substance: EVOLOCUMAB
     Indication: Type IIa hyperlipidaemia
     Dosage: UNK
     Route: 065
  5. EZETIMIBE [Concomitant]
     Active Substance: EZETIMIBE
     Indication: Type IIa hyperlipidaemia
     Dosage: UNK; CONTINUED ON ATORVASTATIN AND EZETIMIBE
     Route: 065

REACTIONS (1)
  - Drug ineffective [Unknown]
